FAERS Safety Report 7119150-4 (Version None)
Quarter: 2010Q4

REPORT INFORMATION
  Report Type: 
  Country: None (occurrence: None)
  Receive Date: 20101123
  Receipt Date: 20100831
  Transmission Date: 20110411
  Serious: No
  Sender: FDA-Public Use
  Company Number: US-MYLANLABS-2010S1016287

PATIENT
  Age: 8 Decade
  Sex: Female

DRUGS (1)
  1. AMLODIPINE BESYLATE [Suspect]
     Indication: BLOOD PRESSURE INCREASED
     Route: 048
     Dates: start: 20100719, end: 20100701

REACTIONS (3)
  - DIZZINESS [None]
  - OEDEMA PERIPHERAL [None]
  - SENSATION OF PRESSURE [None]
